FAERS Safety Report 21689332 (Version 4)
Quarter: 2023Q2

REPORT INFORMATION
  Report Type: Spontaneous
  Country: US (occurrence: US)
  Receive Date: 20221206
  Receipt Date: 20230412
  Transmission Date: 20230721
  Serious: No
  Sender: FDA-Public Use
  Company Number: US-Ipsen Biopharmaceuticals, Inc.-2022-32947

PATIENT
  Age: 63 Year
  Sex: Female

DRUGS (4)
  1. DYSPORT [Suspect]
     Active Substance: ABOBOTULINUMTOXINA
     Indication: Skin wrinkling
     Dosage: 30U IN EACH CROW^S FEET, 36 UNITS IN THE GLABELLA COMPLEX AND 18 UNITS IN THE FRONTALIS
     Route: 065
     Dates: start: 20221110, end: 20221110
  2. DYSPORT [Suspect]
     Active Substance: ABOBOTULINUMTOXINA
     Indication: Skin wrinkling
  3. DYSPORT [Suspect]
     Active Substance: ABOBOTULINUMTOXINA
     Indication: Skin wrinkling
  4. DYSPORT [Suspect]
     Active Substance: ABOBOTULINUMTOXINA
     Indication: Off label use

REACTIONS (7)
  - Diplopia [Recovering/Resolving]
  - Head discomfort [Recovering/Resolving]
  - Asthenopia [Recovering/Resolving]
  - Impaired driving ability [Recovering/Resolving]
  - Eye disorder [Recovering/Resolving]
  - Eye disorder [Recovering/Resolving]
  - Off label use [Unknown]

NARRATIVE: CASE EVENT DATE: 20221110
